FAERS Safety Report 4455452-8 (Version None)
Quarter: 2004Q3

REPORT INFORMATION
  Report Type: 
  Country: None (occurrence: None)
  Receive Date: 20040917
  Receipt Date: 20040831
  Transmission Date: 20050211
  Serious: Yes (Hospitalization)
  Sender: FDA-Public Use
  Company Number: DE_040814217

PATIENT
  Age: 75 Year
  Sex: Male

DRUGS (1)
  1. GEMZAR [Suspect]
     Indication: NON-SMALL CELL LUNG CANCER
     Dosage: 1200 MG/M2
     Dates: start: 20040810, end: 20040817

REACTIONS (7)
  - C-REACTIVE PROTEIN INCREASED [None]
  - DERMATOSIS [None]
  - EXANTHEM [None]
  - FIBRIN D DIMER INCREASED [None]
  - INFUSION RELATED REACTION [None]
  - LEUKOCYTOSIS [None]
  - URINARY TRACT INFECTION [None]
